FAERS Safety Report 17764913 (Version 1)
Quarter: 2020Q3

REPORT INFORMATION
  Report Type: Report from Study
  Country: CZ (occurrence: CZ)
  Receive Date: 20200511
  Receipt Date: 20200511
  Transmission Date: 20201104
  Serious: Yes (Hospitalization)
  Sender: FDA-Public Use
  Company Number: CZ-ROCHE-2590274

PATIENT
  Sex: Male

DRUGS (13)
  1. ZARZIO [Concomitant]
     Active Substance: FILGRASTIM
     Dosage: 48 MIU SC INJ 1XD AT 12:00
     Route: 058
  2. MERONEM [Concomitant]
     Active Substance: MEROPENEM
     Dosage: 2 G + PHYSIOLOGICAL SALINE SOLUTION 100 ML/30 MIN
     Route: 065
  3. FOLIC ACID. [Concomitant]
     Active Substance: FOLIC ACID
     Route: 048
  4. CIPLOX [CIPROFLOXACIN] [Concomitant]
     Active Substance: CIPROFLOXACIN
     Route: 048
  5. VALACICLOVIR [Concomitant]
     Active Substance: VALACYCLOVIR HYDROCHLORIDE
     Route: 048
  6. RITUXIMAB. [Suspect]
     Active Substance: RITUXIMAB
     Indication: DIFFUSE LARGE B-CELL LYMPHOMA REFRACTORY
     Route: 041
     Dates: start: 20200204
  7. BENDAMUSTINE [Suspect]
     Active Substance: BENDAMUSTINE
     Indication: DIFFUSE LARGE B-CELL LYMPHOMA REFRACTORY
     Route: 042
     Dates: start: 20200204
  8. POLATUZUMAB VEDOTIN. [Suspect]
     Active Substance: POLATUZUMAB VEDOTIN
     Indication: DIFFUSE LARGE B-CELL LYMPHOMA REFRACTORY
     Route: 042
     Dates: start: 20200204
  9. ABELCET [Concomitant]
     Active Substance: AMPHOTERICIN B\DIMYRISTOYLPHOSPHATIDYLCHOLINE, DL-\DIMYRISTOYLPHOSPHATIDYLGLYCEROL, DL-
     Dosage: 400 MG + GLU 5%500 ML/6HR
     Route: 065
     Dates: start: 20200309
  10. CITALOPRAM [Concomitant]
     Active Substance: CITALOPRAM HYDROBROMIDE
     Route: 048
  11. BISEPTOL [Concomitant]
     Active Substance: SULFAMETHOXAZOLE\TRIMETHOPRIM
     Route: 048
  12. HELICID [OMEPRAZOLE] [Concomitant]
     Active Substance: OMEPRAZOLE
     Route: 048
  13. KALNORMIN [Concomitant]
     Active Substance: POTASSIUM CHLORIDE
     Route: 048

REACTIONS (2)
  - Bronchopulmonary aspergillosis [Recovering/Resolving]
  - Cytopenia [Unknown]

NARRATIVE: CASE EVENT DATE: 20200303
